FAERS Safety Report 8360177-2 (Version None)
Quarter: 2012Q2

REPORT INFORMATION
  Report Type: 
  Country: None (occurrence: None)
  Receive Date: 20120515
  Receipt Date: 20120509
  Transmission Date: 20120825
  Serious: Yes (Hospitalization, Other)
  Sender: FDA-Public Use
  Company Number: US-AMGEN-USASP2012029481

PATIENT
  Sex: Male

DRUGS (12)
  1. VITAMIN D [Concomitant]
  2. AMLODIPINE BESYLATE [Concomitant]
  3. GLUCOSAMINE AND CHONDROITIN [Concomitant]
  4. VITAMIN C                          /00008001/ [Concomitant]
  5. PROLIA [Suspect]
     Indication: OSTEOPOROSIS
     Dosage: 60 MG, Q6MO
     Dates: start: 20110101
  6. HYALURONIC ACID [Concomitant]
  7. COREG [Concomitant]
  8. CALCIUM [Concomitant]
  9. GINKGO BILOBA [Concomitant]
  10. FUROSEMIDE [Concomitant]
  11. MINOXIDIL [Concomitant]
  12. COENZYME Q10 [Concomitant]

REACTIONS (5)
  - PULMONARY EMBOLISM [None]
  - PYLORIC STENOSIS [None]
  - WEIGHT DECREASED [None]
  - GASTROINTESTINAL HAEMORRHAGE [None]
  - VOMITING [None]
